FAERS Safety Report 12419663 (Version 4)
Quarter: 2016Q3

REPORT INFORMATION
  Report Type: Spontaneous
  Country: JP (occurrence: JP)
  Receive Date: 20160531
  Receipt Date: 20160823
  Transmission Date: 20161109
  Serious: Yes (Hospitalization)
  Sender: FDA-Public Use
  Company Number: JP-SA-2016SA103455

PATIENT
  Age: 65 Year
  Sex: Male
  Weight: 56.1 kg

DRUGS (20)
  1. VECTIBIX [Suspect]
     Active Substance: PANITUMUMAB
     Indication: COLON CANCER
     Dosage: DOSE- 3.6 MG/KG
     Route: 041
     Dates: start: 20160506, end: 20160506
  2. FLUOROURACIL. [Suspect]
     Active Substance: FLUOROURACIL
     Indication: COLON CANCER
     Route: 040
     Dates: start: 201510
  3. TAKEPRON [Concomitant]
     Active Substance: LANSOPRAZOLE
     Route: 065
     Dates: start: 20150909
  4. LIPITOR [Concomitant]
     Active Substance: ATORVASTATIN CALCIUM
     Route: 048
     Dates: start: 20151021
  5. ELIQUIS [Concomitant]
     Active Substance: APIXABAN
     Route: 048
     Dates: start: 20151207
  6. BAYASPIRIN [Concomitant]
     Active Substance: ASPIRIN
     Route: 048
     Dates: start: 20150909
  7. IRINOTECAN HYDROCHLORIDE. [Concomitant]
     Active Substance: IRINOTECAN HYDROCHLORIDE
     Indication: COLON CANCER
     Route: 041
     Dates: start: 20151023, end: 20160219
  8. WARFARIN [Concomitant]
     Active Substance: WARFARIN
     Route: 065
     Dates: start: 20150909
  9. PLAVIX [Concomitant]
     Active Substance: CLOPIDOGREL BISULFATE
     Route: 065
     Dates: start: 20150909
  10. ALLEGRA [Suspect]
     Active Substance: FEXOFENADINE HYDROCHLORIDE
     Route: 048
     Dates: end: 20160429
  11. VECTIBIX [Suspect]
     Active Substance: PANITUMUMAB
     Indication: COLON CANCER
     Dosage: DOSE- 3.6 MG/KG
     Route: 041
     Dates: start: 20160311, end: 20160408
  12. VECTIBIX [Suspect]
     Active Substance: PANITUMUMAB
     Indication: COLON CANCER
     Dosage: 6 MG/KG
     Route: 041
     Dates: start: 20151023
  13. CALCIUM LEVOFOLINATE [Suspect]
     Active Substance: LEVOLEUCOVORIN CALCIUM
     Indication: COLON CANCER
     Route: 041
     Dates: start: 201510
  14. MINOMYCIN [Suspect]
     Active Substance: MINOCYCLINE HYDROCHLORIDE
     Route: 065
  15. FEBURIC [Concomitant]
     Active Substance: FEBUXOSTAT
     Route: 048
     Dates: start: 20150909
  16. SIGMART [Concomitant]
     Active Substance: NICORANDIL
     Route: 065
     Dates: start: 20151021
  17. VECTIBIX [Suspect]
     Active Substance: PANITUMUMAB
     Indication: COLON CANCER
     Dosage: DOSE- 3.6 MG/KG
     Route: 041
     Dates: start: 20151204, end: 20160219
  18. FLUOROURACIL. [Suspect]
     Active Substance: FLUOROURACIL
     Indication: COLON CANCER
     Route: 041
     Dates: start: 201510
  19. MAINTATE [Concomitant]
     Active Substance: BISOPROLOL FUMARATE
     Route: 048
     Dates: start: 20150909
  20. REZALTAS [Concomitant]
     Active Substance: AZELNIDIPINE\OLMESARTAN MEDOXOMIL
     Route: 065
     Dates: start: 20150909

REACTIONS (11)
  - Diarrhoea [Unknown]
  - Fatigue [Recovering/Resolving]
  - Hepatic function abnormal [Not Recovered/Not Resolved]
  - Decreased appetite [Recovered/Resolved]
  - Skin disorder [Not Recovered/Not Resolved]
  - Dermatitis acneiform [Recovering/Resolving]
  - Fatigue [Unknown]
  - Alanine aminotransferase increased [Recovering/Resolving]
  - Tinnitus [Unknown]
  - Eating disorder [Unknown]
  - Aspartate aminotransferase increased [Recovering/Resolving]

NARRATIVE: CASE EVENT DATE: 20151104
